FAERS Safety Report 6167076-5 (Version None)
Quarter: 2009Q2

REPORT INFORMATION
  Report Type: 
  Country: None (occurrence: None)
  Receive Date: 20090424
  Receipt Date: 20090413
  Transmission Date: 20091009
  Serious: Yes (Other)
  Sender: FDA-Public Use
  Company Number: JP-PFIZER INC-2009189495

PATIENT

DRUGS (9)
  1. MIGLITOL [Suspect]
     Indication: TYPE 2 DIABETES MELLITUS
     Dosage: 75 MG, UNK
     Route: 048
     Dates: start: 20090216, end: 20090305
  2. NIFEDIPINE [Concomitant]
     Indication: HYPERTENSION
     Dosage: 20 MG, UNK
     Route: 048
     Dates: end: 20090306
  3. LANSOPRAZOLE [Concomitant]
     Indication: GASTRITIS
     Dosage: 15 MG, UNK
     Route: 048
  4. CARNACULIN [Concomitant]
     Indication: VERTIGO
     Dosage: 50 IU, UNK
     Route: 048
     Dates: end: 20090306
  5. MECOBALAMIN [Concomitant]
     Indication: NEUROPATHY PERIPHERAL
     Dosage: 1500 UG, UNK
     Route: 048
     Dates: end: 20090306
  6. OLMETEC [Concomitant]
     Indication: HYPERTENSION
     Dosage: 20 MG, UNK
     Route: 048
  7. CILOSTAZOL [Concomitant]
     Indication: ARTERIOSCLEROSIS OBLITERANS
     Dosage: 200 MG, UNK
     Route: 048
     Dates: end: 20090306
  8. CILOSTAZOL [Concomitant]
     Indication: ANGINA PECTORIS
     Dosage: 200 MG, UNK
     Route: 048
  9. EURODIN [Concomitant]
     Indication: INSOMNIA
     Dosage: UNK
     Route: 048
     Dates: end: 20090306

REACTIONS (2)
  - INTESTINAL ISCHAEMIA [None]
  - SUBILEUS [None]
